FAERS Safety Report 16156489 (Version 8)
Quarter: 2019Q2

REPORT INFORMATION
  Report Type: Spontaneous
  Country: US (occurrence: US)
  Receive Date: 20190404
  Receipt Date: 20190604
  Transmission Date: 20190711
  Serious: Yes (Hospitalization, Other)
  Sender: FDA-Public Use
  Company Number: US-UNITED THERAPEUTICS-UNT-2019-005952

PATIENT
  Age: 74 Year
  Sex: Female
  Weight: 96.6 kg

DRUGS (6)
  1. TYVASO [Suspect]
     Active Substance: TREPROSTINIL
     Dosage: UNK
  2. ADEMPAS [Suspect]
     Active Substance: RIOCIGUAT
     Indication: PRODUCT USED FOR UNKNOWN INDICATION
     Dosage: UNK
     Route: 065
  3. XARELTO [Concomitant]
     Active Substance: RIVAROXABAN
     Indication: PRODUCT USED FOR UNKNOWN INDICATION
     Dosage: UNK
     Route: 065
  4. TYVASO [Suspect]
     Active Substance: TREPROSTINIL
     Indication: PULMONARY ARTERIAL HYPERTENSION
     Dosage: 18-54 MICROGRAMS, QID
     Dates: start: 20190228
  5. TYVASO [Suspect]
     Active Substance: TREPROSTINIL
     Dosage: 18-54 ?G, QID
  6. ADEMPAS [Suspect]
     Active Substance: RIOCIGUAT
     Dosage: 1 MG, TID
     Route: 065

REACTIONS (20)
  - Limb injury [Unknown]
  - Colitis ulcerative [Unknown]
  - Blood glucose increased [Unknown]
  - Pain [Unknown]
  - Pulmonary arterial hypertension [Unknown]
  - Dizziness [Unknown]
  - Retching [Unknown]
  - Cough [Unknown]
  - Diarrhoea [Recovered/Resolved]
  - Respiration abnormal [Unknown]
  - Fall [Recovered/Resolved with Sequelae]
  - Peripheral swelling [Unknown]
  - Migraine [Unknown]
  - Oral discomfort [Unknown]
  - Malaise [Unknown]
  - Syncope [Unknown]
  - Fluid retention [Unknown]
  - Nausea [Recovered/Resolved]
  - Lung infection [Unknown]
  - Joint injury [Unknown]

NARRATIVE: CASE EVENT DATE: 20190401
